FAERS Safety Report 18483748 (Version 2)
Quarter: 2020Q4

REPORT INFORMATION
  Report Type: Spontaneous
  Country: FR (occurrence: FR)
  Receive Date: 20201110
  Receipt Date: 20201124
  Transmission Date: 20210114
  Serious: Yes (Hospitalization)
  Sender: FDA-Public Use
  Company Number: FR-AUROBINDO-AUR-APL-2020-055084

PATIENT
  Age: 14 Year
  Sex: Male
  Weight: 48 kg

DRUGS (2)
  1. BACTRIM [Suspect]
     Active Substance: SULFAMETHOXAZOLE\TRIMETHOPRIM
     Indication: OSTEITIS
     Dosage: 2400 MILLIGRAM, ONCE A DAY
     Route: 048
     Dates: start: 20201005, end: 20201009
  2. LEVOFLOXACINE ARROW FILM-COATED TABLETS 500MG [Suspect]
     Active Substance: LEVOFLOXACIN
     Indication: OSTEITIS
     Dosage: 500 MILLIGRAM, ONCE A DAY
     Route: 048
     Dates: start: 20201001, end: 20201010

REACTIONS (3)
  - Mechanical urticaria [Recovered/Resolved]
  - Joint effusion [Recovering/Resolving]
  - Pruritus [Recovered/Resolved]

NARRATIVE: CASE EVENT DATE: 20201006
